FAERS Safety Report 24760442 (Version 1)
Quarter: 2024Q4

REPORT INFORMATION
  Report Type: Spontaneous
  Country: US (occurrence: None)
  Receive Date: 20241220
  Receipt Date: 20241220
  Transmission Date: 20250114
  Serious: Yes (Hospitalization)
  Sender: Public
  Company Number: None

PATIENT
  Sex: Male

DRUGS (3)
  1. AUSTEDO XR [Suspect]
     Active Substance: DEUTETRABENAZINE
     Indication: Dyskinesia
     Dosage: FREQUENCY : DAILY;?
     Route: 048
     Dates: start: 202411
  2. AUSTEDO XR [Suspect]
     Active Substance: DEUTETRABENAZINE
     Indication: Adverse drug reaction
  3. INGREZZA [Concomitant]
     Active Substance: VALBENAZINE

REACTIONS (3)
  - Tremor [None]
  - Blood electrolytes decreased [None]
  - Emergency care [None]
